FAERS Safety Report 4726297-6 (Version None)
Quarter: 2005Q3

REPORT INFORMATION
  Report Type: 
  Country: None (occurrence: None)
  Receive Date: 20050721
  Receipt Date: 20050711
  Transmission Date: 20060218
  Serious: Yes (Hospitalization)
  Sender: FDA-Public Use
  Company Number: 2005BI007097

PATIENT
  Age: 51 Year
  Sex: Female

DRUGS (2)
  1. AVONEX [Suspect]
     Indication: MULTIPLE SCLEROSIS
     Dosage: 30 UG;QW;IM
     Route: 030
     Dates: start: 19970420, end: 20030731
  2. AVONEX [Suspect]
     Indication: MULTIPLE SCLEROSIS
     Dosage: 30 UG;QW;IM
     Route: 030
     Dates: start: 20030807

REACTIONS (6)
  - ANXIETY [None]
  - BLOOD POTASSIUM DECREASED [None]
  - DEPRESSION [None]
  - HALLUCINATION [None]
  - OSTEOPOROSIS [None]
  - TOXIC INDUCED ENCEPHALOPATHY [None]
